FAERS Safety Report 26112720 (Version 1)
Quarter: 2025Q4

REPORT INFORMATION
  Report Type: Spontaneous
  Country: CN (occurrence: CN)
  Receive Date: 20251202
  Receipt Date: 20251202
  Transmission Date: 20260118
  Serious: Yes (Other)
  Sender: SANOFI AVENTIS
  Company Number: CN-SA-2025SA355526

PATIENT
  Age: 82 Year
  Sex: Male

DRUGS (6)
  1. DUPILUMAB [Suspect]
     Active Substance: DUPILUMAB
     Indication: Dermatitis atopic
     Dosage: 600 MG
     Route: 058
  2. DUPILUMAB [Suspect]
     Active Substance: DUPILUMAB
     Dosage: 300 MG, QOW (MAINTENANCE TREATMENT)
     Route: 058
  3. DUPILUMAB [Suspect]
     Active Substance: DUPILUMAB
     Dosage: 300 MG, QOW (RESTARTED)
     Route: 058
  4. APREMILAST [Suspect]
     Active Substance: APREMILAST
     Indication: Psoriasis
     Dosage: 10 MG, QD (FIRST DAY)
     Route: 048
  5. APREMILAST [Suspect]
     Active Substance: APREMILAST
     Dosage: INCREASED BY 10 MG PER DAY UNTIL
     Route: 048
  6. APREMILAST [Suspect]
     Active Substance: APREMILAST
     Dosage: 30 MG, BID
     Route: 048

REACTIONS (10)
  - Tuberculosis [Recovering/Resolving]
  - Pleural effusion [Recovering/Resolving]
  - Psoriasis [Recovering/Resolving]
  - Skin lesion [Recovering/Resolving]
  - Skin exfoliation [Recovering/Resolving]
  - Skin hyperplasia [Recovering/Resolving]
  - Lymphocytic infiltration [Recovering/Resolving]
  - Erythema [Recovering/Resolving]
  - Skin plaque [Recovering/Resolving]
  - Herpes zoster [Recovering/Resolving]
